FAERS Safety Report 5612486-5 (Version None)
Quarter: 2008Q1

REPORT INFORMATION
  Report Type: 
  Country: None (occurrence: None)
  Receive Date: 20080204
  Receipt Date: 20080129
  Transmission Date: 20080703
  Serious: Yes (Life-Threatening, Other)
  Sender: FDA-Public Use
  Company Number: JP-ASTRAZENECA-2008AP00692

PATIENT
  Age: 54 Year
  Sex: Female

DRUGS (3)
  1. SEROQUEL [Suspect]
     Indication: SCHIZOPHRENIA
     Route: 048
  2. ORAP [Suspect]
     Indication: SCHIZOPHRENIA
     Route: 048
  3. ORAP [Suspect]
     Route: 048

REACTIONS (5)
  - CARDIO-RESPIRATORY ARREST [None]
  - LONG QT SYNDROME [None]
  - STRESS CARDIOMYOPATHY [None]
  - TORSADE DE POINTES [None]
  - VENTRICULAR FIBRILLATION [None]
